FAERS Safety Report 16361374 (Version 2)
Quarter: 2019Q3

REPORT INFORMATION
  Report Type: Spontaneous
  Country: US (occurrence: US)
  Receive Date: 20190528
  Receipt Date: 20190903
  Transmission Date: 20191004
  Serious: Yes (Death, Hospitalization, Other)
  Sender: FDA-Public Use
  Company Number: US-AMGEN-USASP2019081183

PATIENT
  Age: 74 Year
  Sex: Male

DRUGS (2)
  1. NPLATE [Suspect]
     Active Substance: ROMIPLOSTIM
     Indication: HAEMORRHAGE
  2. NPLATE [Suspect]
     Active Substance: ROMIPLOSTIM
     Indication: PLATELET COUNT DECREASED
     Dosage: UNK, QWK
     Route: 065
     Dates: start: 201904

REACTIONS (13)
  - Pleural effusion [Unknown]
  - Haemorrhage [Unknown]
  - Peripheral swelling [Unknown]
  - Cough [Unknown]
  - Asthenia [Unknown]
  - Pneumonia [Recovering/Resolving]
  - Hallucination [Unknown]
  - Pain [Unknown]
  - Arthralgia [Unknown]
  - Pain in extremity [Unknown]
  - Staphylococcal sepsis [Fatal]
  - Fluid retention [Unknown]
  - Malaise [Unknown]

NARRATIVE: CASE EVENT DATE: 2019
